FAERS Safety Report 11112004 (Version 2)
Quarter: 2015Q2

REPORT INFORMATION
  Report Type: Report from Study
  Country: DE (occurrence: DE)
  Receive Date: 20150514
  Receipt Date: 20150525
  Transmission Date: 20150821
  Serious: Yes (Other)
  Sender: FDA-Public Use
  Company Number: DE-ROCHE-1576020

PATIENT
  Age: 12 Year
  Sex: Female

DRUGS (3)
  1. SOMATROPIN [Suspect]
     Active Substance: SOMATROPIN
     Indication: GROWTH HORMONE DEFICIENCY
     Route: 058
     Dates: start: 20100629
  2. SOMATROPIN [Suspect]
     Active Substance: SOMATROPIN
     Route: 058
     Dates: start: 20131205
  3. SOMATROPIN [Suspect]
     Active Substance: SOMATROPIN
     Dosage: FORM STRENGTH : 10 MG / 2 ML
     Route: 058
     Dates: start: 20140515

REACTIONS (2)
  - Glomerulonephritis [Unknown]
  - Proteinuria [Not Recovered/Not Resolved]

NARRATIVE: CASE EVENT DATE: 20131205
